FAERS Safety Report 9940894 (Version 2)
Quarter: 2014Q1

REPORT INFORMATION
  Report Type: Spontaneous
  Country: JP (occurrence: JP)
  Receive Date: 20140303
  Receipt Date: 20140303
  Transmission Date: 20141002
  Serious: Yes (Other)
  Sender: FDA-Public Use
  Company Number: JP-PFIZER INC-2014057278

PATIENT
  Age: 78 Year
  Sex: Female

DRUGS (10)
  1. LIPITOR [Suspect]
     Dosage: 10 MG, 1X/DAY
     Route: 048
     Dates: start: 201309
  2. PREDNISOLONE [Suspect]
     Dosage: 4 MG, DAILY
     Route: 048
  3. MYSLEE [Suspect]
     Indication: INSOMNIA
     Dosage: 10 MG, 1X/DAY
     Route: 048
     Dates: end: 20140108
  4. TAKEPRON [Concomitant]
     Dosage: UNK
  5. FRUSEMIDE [Concomitant]
     Dosage: UNK
  6. ASPIRIN [Concomitant]
     Dosage: UNK
  7. ARTIST [Concomitant]
     Dosage: UNK
  8. SALOBEL [Concomitant]
     Dosage: UNK
  9. DIART [Concomitant]
     Dosage: UNK
  10. KALIMATE [Concomitant]
     Dosage: UNK

REACTIONS (1)
  - Depressed level of consciousness [Recovered/Resolved]
